FAERS Safety Report 25427970 (Version 5)
Quarter: 2025Q3

REPORT INFORMATION
  Report Type: Report from Study
  Country: US (occurrence: US)
  Receive Date: 20250612
  Receipt Date: 20250902
  Transmission Date: 20251020
  Serious: No
  Sender: SUNOVION
  Company Number: US-SMPA-2025SPA006243AA

PATIENT
  Age: 74 Year
  Sex: Male

DRUGS (16)
  1. ORGOVYX [Suspect]
     Active Substance: RELUGOLIX
     Indication: Prostate cancer
     Route: 048
  2. ORGOVYX [Suspect]
     Active Substance: RELUGOLIX
     Dosage: 120 MG, QD
     Route: 048
  3. TAMSULOSIN [Concomitant]
     Active Substance: TAMSULOSIN
  4. ALEVE [Concomitant]
     Active Substance: NAPROXEN SODIUM
  5. Turmeric complex [Concomitant]
  6. VITAMIN D3 [Concomitant]
     Active Substance: CHOLECALCIFEROL
  7. DOXYCYCLINE [Concomitant]
     Active Substance: DOXYCYCLINE
  8. BENZONATATE [Concomitant]
     Active Substance: BENZONATATE
  9. ALBUTEROL SULFATE [Concomitant]
     Active Substance: ALBUTEROL SULFATE
  10. Magnebind [Concomitant]
  11. VITAMINS [Concomitant]
     Active Substance: VITAMINS
  12. BIOTIN [Concomitant]
     Active Substance: BIOTIN
  13. VENLAFAXINE [Concomitant]
     Active Substance: VENLAFAXINE HYDROCHLORIDE
  14. OXYBUTYNIN [Concomitant]
     Active Substance: OXYBUTYNIN
  15. ATORVASTATIN [Concomitant]
     Active Substance: ATORVASTATIN
  16. NITROFURANTOIN MONOHYDRATE MACROCRYSTALS [Concomitant]
     Active Substance: NITROFURANTOIN\NITROFURANTOIN MONOHYDRATE

REACTIONS (9)
  - Sinusitis [Unknown]
  - Abdominal distension [Unknown]
  - Urinary tract infection [Unknown]
  - Abdominal discomfort [Unknown]
  - Hot flush [Unknown]
  - Diarrhoea [Unknown]
  - Weight increased [Unknown]
  - Loss of libido [Unknown]
  - Fatigue [Unknown]
